FAERS Safety Report 8570392-0 (Version None)
Quarter: 2012Q3

REPORT INFORMATION
  Report Type: 
  Country: None (occurrence: None)
  Receive Date: 20120803
  Receipt Date: 20120724
  Transmission Date: 20120928
  Serious: No
  Sender: FDA-Public Use
  Company Number: US-ASTRAZENECA-2012SE52342

PATIENT
  Sex: Male

DRUGS (6)
  1. SPIRIVA [Concomitant]
  2. SYMBICORT [Suspect]
     Indication: ASTHMA
     Dosage: 160/4.5, UNKNOWN FREQUENCY
     Route: 055
  3. PROAIR HFA [Concomitant]
  4. SINGULAIR [Concomitant]
  5. ALBUTEROL [Concomitant]
  6. NOSE DROP [Concomitant]

REACTIONS (3)
  - DYSPHONIA [None]
  - DRY THROAT [None]
  - INTENTIONAL DRUG MISUSE [None]
